FAERS Safety Report 8284386-6 (Version None)
Quarter: 2012Q2

REPORT INFORMATION
  Report Type: 
  Country: None (occurrence: None)
  Receive Date: 20120413
  Receipt Date: 20110630
  Transmission Date: 20120825
  Serious: No
  Sender: FDA-Public Use
  Company Number: AE-ASTRAZENECA-2011SE39450

PATIENT
  Age: 55 Year
  Sex: Male

DRUGS (5)
  1. PRILOSEC [Suspect]
     Route: 048
  2. LOVASTATIN [Concomitant]
  3. NEURONTIN [Concomitant]
  4. NEXIUM [Suspect]
     Indication: DYSPEPSIA
     Route: 048
     Dates: start: 20110627
  5. NEXIUM [Suspect]
     Indication: GASTROOESOPHAGEAL REFLUX DISEASE
     Route: 048
     Dates: start: 20110627

REACTIONS (5)
  - DYSPEPSIA [None]
  - FATIGUE [None]
  - DRUG INEFFECTIVE [None]
  - GASTROOESOPHAGEAL REFLUX DISEASE [None]
  - INSOMNIA [None]
